FAERS Safety Report 11745779 (Version 1)
Quarter: 2015Q4

REPORT INFORMATION
  Report Type: Spontaneous
  Country: US (occurrence: None)
  Receive Date: 20151116
  Receipt Date: 20151116
  Transmission Date: 20160304
  Serious: No
  Sender: FDA-Public Use
  Company Number: None

PATIENT
  Age: 35 Year
  Sex: Female

DRUGS (1)
  1. CLOMIPHENE CITRATE 50MG TABLET PAR PHARMACEUTICALS [Suspect]
     Active Substance: CLOMIPHENE CITRATE
     Route: 048
     Dates: start: 20151020, end: 20151114

REACTIONS (1)
  - Lip discolouration [None]

NARRATIVE: CASE EVENT DATE: 20151114
